FAERS Safety Report 8478837-1 (Version None)
Quarter: 2012Q2

REPORT INFORMATION
  Report Type: 
  Country: None (occurrence: None)
  Receive Date: 20120402
  Receipt Date: 20111013
  Transmission Date: 20120825
  Serious: Yes (Disabling, Other)
  Sender: FDA-Public Use
  Company Number: 289288USA

PATIENT
  Sex: Female

DRUGS (2)
  1. ALENDRONATE SODIUM [Suspect]
     Dates: start: 20080312
  2. ALENDRONATE SODIUM [Suspect]
     Indication: OSTEOPOROSIS
     Dates: start: 20020129

REACTIONS (6)
  - GAIT DISTURBANCE [None]
  - FOOT FRACTURE [None]
  - LOW TURNOVER OSTEOPATHY [None]
  - ATYPICAL FEMUR FRACTURE [None]
  - PAIN [None]
  - SCAR [None]
